FAERS Safety Report 5846502-2 (Version None)
Quarter: 2008Q3

REPORT INFORMATION
  Report Type: 
  Country: None (occurrence: None)
  Receive Date: 20080815
  Receipt Date: 20080805
  Transmission Date: 20090109
  Serious: Yes (Hospitalization)
  Sender: FDA-Public Use
  Company Number: DE-ABBOTT-08P-062-0469098-00

PATIENT
  Sex: Male
  Weight: 83 kg

DRUGS (6)
  1. HUMIRA [Suspect]
     Indication: PSORIATIC ARTHROPATHY
     Route: 058
     Dates: start: 20050101, end: 20080701
  2. HUMIRA [Suspect]
     Route: 058
     Dates: start: 20080729
  3. DIOVAN HCT [Concomitant]
     Indication: HYPERTENSION
     Route: 048
     Dates: start: 20060101
  4. ALENDRONSAURE [Concomitant]
     Indication: OSTEOPOROSIS
     Route: 048
     Dates: start: 20050101
  5. CALCIUM CARBONATE [Concomitant]
     Indication: OSTEOPOROSIS
     Route: 048
     Dates: start: 20060101
  6. NITROFURANTOIN [Concomitant]
     Indication: RENAL FAILURE
     Route: 048
     Dates: start: 20000101

REACTIONS (2)
  - ARTICULAR CALCIFICATION [None]
  - MUSCULOSKELETAL PAIN [None]
